FAERS Safety Report 8033309-3 (Version None)
Quarter: 2012Q1

REPORT INFORMATION
  Report Type: 
  Country: None (occurrence: None)
  Receive Date: 20120110
  Receipt Date: 20120102
  Transmission Date: 20120608
  Serious: Yes (Other)
  Sender: FDA-Public Use
  Company Number: CA-JNJFOC-20120101316

PATIENT
  Sex: Female
  Weight: 81 kg

DRUGS (12)
  1. DICYCLOMINE [Concomitant]
  2. CONCERTA [Concomitant]
  3. ALENDRONATE SODIUM [Concomitant]
  4. LOPERAMIDE [Concomitant]
  5. AZATHIOPRINE [Concomitant]
  6. LANSOPRAZOLE [Concomitant]
  7. VENLAFAXINE HCL EXTENDED-RELEASE [Concomitant]
  8. HYDROXYZINE HCL [Concomitant]
  9. REMICADE [Suspect]
     Indication: COLITIS ULCERATIVE
     Route: 042
     Dates: start: 20110721
  10. ATENOLOL [Concomitant]
  11. BIOCAL D FORTE [Concomitant]
     Dosage: 500MG-400UI
  12. VITAMIN D [Concomitant]

REACTIONS (1)
  - GASTROINTESTINAL INFLAMMATION [None]
